FAERS Safety Report 17039704 (Version 3)
Quarter: 2019Q4

REPORT INFORMATION
  Report Type: Spontaneous
  Country: US (occurrence: US)
  Receive Date: 20191116
  Receipt Date: 20191205
  Transmission Date: 20200122
  Serious: No
  Sender: FDA-Public Use
  Company Number: US-JNJFOC-20191120280

PATIENT
  Age: 16 Year
  Sex: Male
  Weight: 65.83 kg

DRUGS (1)
  1. MENS ROGAINE EXTRA STRENGTH [Suspect]
     Active Substance: MINOXIDIL
     Indication: PRODUCT USED FOR UNKNOWN INDICATION
     Dosage: ALMOST A CAP FULL WHAT THE DOSING SAYS
     Route: 061
     Dates: start: 20191025

REACTIONS (7)
  - Application site irritation [Recovering/Resolving]
  - Application site pruritus [Recovering/Resolving]
  - Application site erythema [Recovering/Resolving]
  - Application site dryness [Recovering/Resolving]
  - Product administered to patient of inappropriate age [Unknown]
  - Overdose [Unknown]
  - Off label use [Unknown]

NARRATIVE: CASE EVENT DATE: 20191025
